FAERS Safety Report 11146375 (Version 1)
Quarter: 2015Q2

REPORT INFORMATION
  Report Type: Spontaneous
  Country: US (occurrence: US)
  Receive Date: 20150528
  Receipt Date: 20150528
  Transmission Date: 20150821
  Serious: Yes (Other)
  Sender: FDA-Public Use
  Company Number: US-GILEAD-2015-0155133

PATIENT

DRUGS (1)
  1. VISTIDE [Suspect]
     Active Substance: CIDOFOVIR
     Indication: ADENOVIRUS INFECTION
     Route: 065

REACTIONS (4)
  - Pseudomonas infection [Unknown]
  - Off label use [Unknown]
  - Blood urea increased [Unknown]
  - Blood creatinine increased [Unknown]
